FAERS Safety Report 11167688 (Version 1)
Quarter: 2015Q2

REPORT INFORMATION
  Report Type: Report from Study
  Country: US (occurrence: US)
  Receive Date: 20150605
  Receipt Date: 20150605
  Transmission Date: 20150821
  Serious: Yes (Other)
  Sender: FDA-Public Use
  Company Number: US-BAXTER-2015BAX029552

PATIENT
  Sex: Male

DRUGS (1)
  1. GAMMAGARD LIQUID [Suspect]
     Active Substance: HUMAN IMMUNOGLOBULIN G
     Indication: IMMUNODEFICIENCY COMMON VARIABLE
     Route: 058

REACTIONS (7)
  - Autoimmune disorder [Unknown]
  - Peroneal nerve palsy [Unknown]
  - Sjogren^s syndrome [Unknown]
  - Spinal cord disorder [Unknown]
  - Psoriasis [Unknown]
  - Muscle contracture [Unknown]
  - Hypothyroidism [Unknown]
